FAERS Safety Report 18312368 (Version 1)
Quarter: 2020Q3

REPORT INFORMATION
  Report Type: Spontaneous
  Country: US (occurrence: US)
  Receive Date: 20200925
  Receipt Date: 20200925
  Transmission Date: 20201103
  Serious: Yes (Life-Threatening, Hospitalization, Other)
  Sender: FDA-Public Use
  Company Number: NVSC2020US255626

PATIENT
  Sex: Male
  Weight: 129 kg

DRUGS (18)
  1. ZOFRAN [Suspect]
     Active Substance: ONDANSETRON HYDROCHLORIDE
     Indication: ABDOMINAL PAIN UPPER
     Dosage: 4 MG (AS NEEDED UP TO THREE TIMES A DAY) (GET 90 PILLS A MONTH)
     Route: 065
  2. ZANTAC [Suspect]
     Active Substance: RANITIDINE HYDROCHLORIDE
     Indication: GASTRIC DISORDER
     Dosage: UNK
     Route: 065
     Dates: start: 2012, end: 2018
  3. TOPIRAMATE. [Suspect]
     Active Substance: TOPIRAMATE
     Dosage: 10 UNK (UNIT NOT PROVIDED)
     Route: 065
  4. TOPAMAX [Suspect]
     Active Substance: TOPIRAMATE
     Indication: PRODUCT USED FOR UNKNOWN INDICATION
     Route: 065
  5. TOPIRAMATE. [Suspect]
     Active Substance: TOPIRAMATE
     Dosage: 5 UNK (UNIT NOT PROVIDED)
     Route: 065
  6. OXYCODONE [Suspect]
     Active Substance: OXYCODONE
     Indication: PRODUCT USED FOR UNKNOWN INDICATION
     Route: 065
  7. NEURONTIN [Suspect]
     Active Substance: GABAPENTIN
     Indication: PRODUCT USED FOR UNKNOWN INDICATION
     Route: 065
  8. RANITIDINE. [Suspect]
     Active Substance: RANITIDINE
     Dosage: 1 DF, QD (ONE A DAY)
     Route: 065
  9. TOPIRAMATE. [Suspect]
     Active Substance: TOPIRAMATE
     Indication: PRODUCT USED FOR UNKNOWN INDICATION
     Dosage: UNK
     Route: 065
  10. CELEBREX [Suspect]
     Active Substance: CELECOXIB
     Indication: PRODUCT USED FOR UNKNOWN INDICATION
     Dosage: 200 MG, QD
     Route: 065
  11. GABAPENTIN. [Suspect]
     Active Substance: GABAPENTIN
     Indication: NEURALGIA
     Dosage: 600 MG, QD
     Route: 065
  12. CLONAZEPAM. [Suspect]
     Active Substance: CLONAZEPAM
     Dosage: 1 MG (WAS ON 1MG FOUR TIMES A DAY FOR EIGHT YEARS )
     Route: 065
  13. GABAPENTIN. [Suspect]
     Active Substance: GABAPENTIN
     Dosage: 800 MG, TID
     Route: 065
  14. RANITIDINE. [Suspect]
     Active Substance: RANITIDINE
     Indication: PRODUCT USED FOR UNKNOWN INDICATION
     Route: 065
  15. OXYCODONE [Suspect]
     Active Substance: OXYCODONE
     Dosage: 10 MG
     Route: 065
  16. CLONAZEPAM. [Suspect]
     Active Substance: CLONAZEPAM
     Indication: PRODUCT USED FOR UNKNOWN INDICATION
     Dosage: UNK
     Route: 065
  17. CLONAZEPAM. [Suspect]
     Active Substance: CLONAZEPAM
     Dosage: 0.5 MG, TID
     Route: 065
  18. TOPIRAMATE. [Suspect]
     Active Substance: TOPIRAMATE
     Dosage: 200 MG
     Route: 065

REACTIONS (23)
  - Pain in extremity [Unknown]
  - Vomiting [Unknown]
  - Dry mouth [Unknown]
  - Scar [Unknown]
  - Depression [Unknown]
  - Adverse drug reaction [Unknown]
  - Neuralgia [Unknown]
  - Feeling abnormal [Unknown]
  - Eating disorder [Unknown]
  - Suicide attempt [Unknown]
  - Abdominal pain upper [Unknown]
  - Anxiety [Unknown]
  - Tooth loss [Unknown]
  - Scab [Unknown]
  - Stomach mass [Unknown]
  - Epilepsy [Unknown]
  - Migraine [Unknown]
  - Frustration tolerance decreased [Unknown]
  - Seizure [Unknown]
  - Memory impairment [Unknown]
  - Dental caries [Unknown]
  - Tremor [Unknown]
  - Anal incontinence [Unknown]

NARRATIVE: CASE EVENT DATE: 2012
